FAERS Safety Report 16678093 (Version 1)
Quarter: 2019Q3

REPORT INFORMATION
  Report Type: Spontaneous
  Country: US (occurrence: US)
  Receive Date: 20190806
  Receipt Date: 20190806
  Transmission Date: 20191004
  Serious: Yes (Hospitalization)
  Sender: FDA-Public Use
  Company Number: None

PATIENT
  Age: 24 Year
  Sex: Male

DRUGS (7)
  1. FOLIC ACID. [Concomitant]
     Active Substance: FOLIC ACID
  2. STOOL SOFTNR [Concomitant]
  3. ACTEMRA [Suspect]
     Active Substance: TOCILIZUMAB
     Indication: RHEUMATOID ARTHRITIS
     Dosage: ?          OTHER FREQUENCY:WEEKLY;?
     Route: 058
     Dates: start: 20170629
  4. INDOMETHACIN. [Concomitant]
     Active Substance: INDOMETHACIN
  5. TRAMADOL. [Concomitant]
     Active Substance: TRAMADOL
  6. VITAMIN C [Concomitant]
     Active Substance: ASCORBIC ACID
  7. FEROSUL [Concomitant]

REACTIONS (2)
  - Ulcer [None]
  - Haemoglobin decreased [None]

NARRATIVE: CASE EVENT DATE: 20190805
